FAERS Safety Report 15014687 (Version 1)
Quarter: 2018Q2

REPORT INFORMATION
  Report Type: Spontaneous
  Country: NZ (occurrence: NZ)
  Receive Date: 20180615
  Receipt Date: 20180615
  Transmission Date: 20180711
  Serious: Yes (Other)
  Sender: FDA-Public Use
  Company Number: NZ-ABBVIE-18K-118-2388131-00

PATIENT
  Age: 54 Year
  Sex: Female

DRUGS (2)
  1. HUMIRA [Suspect]
     Active Substance: ADALIMUMAB
     Route: 058
     Dates: end: 2018
  2. HUMIRA [Suspect]
     Active Substance: ADALIMUMAB
     Indication: CROHN^S DISEASE
     Route: 058
     Dates: start: 2011

REACTIONS (4)
  - Colitis [Unknown]
  - Inappropriate schedule of drug administration [Unknown]
  - Eczema [Unknown]
  - Rash generalised [Not Recovered/Not Resolved]

NARRATIVE: CASE EVENT DATE: 2018
